FAERS Safety Report 16586579 (Version 6)
Quarter: 2021Q2

REPORT INFORMATION
  Report Type: Report from Study
  Country: TH (occurrence: TH)
  Receive Date: 20190717
  Receipt Date: 20210503
  Transmission Date: 20210716
  Serious: Yes (Death, Other)
  Sender: FDA-Public Use
  Company Number: TH-ASTRAZENECA-2019SE98907

PATIENT
  Age: 27401 Day
  Sex: Male

DRUGS (75)
  1. PEMETREXED. [Suspect]
     Active Substance: PEMETREXED
     Indication: NON-SMALL CELL LUNG CANCER STAGE IV
     Dosage: 805 MG
     Route: 065
     Dates: start: 20190529, end: 20190529
  2. AMLODIPINE [Concomitant]
     Active Substance: AMLODIPINE BESYLATE
     Indication: HYPERTENSION
     Route: 048
     Dates: start: 20051006
  3. DEXAMETHASONE. [Concomitant]
     Active Substance: DEXAMETHASONE
     Indication: PREMEDICATION
     Dosage: 4.0MG ONCE/SINGLE ADMINISTRATION
     Route: 048
     Dates: start: 20190820, end: 20190822
  4. SALBUTAMOL INH [Concomitant]
     Indication: ASTHMA
     Route: 055
     Dates: start: 20190412
  5. DANXAMETHASONE [Concomitant]
     Indication: PREMEDICATION
     Route: 048
     Dates: start: 20190619, end: 20190621
  6. PREDNISONE. [Concomitant]
     Active Substance: PREDNISONE
     Indication: DRUG-INDUCED LIVER INJURY
     Route: 048
     Dates: start: 20190808, end: 20190812
  7. PREDNISONE. [Concomitant]
     Active Substance: PREDNISONE
     Indication: DRUG-INDUCED LIVER INJURY
     Route: 048
     Dates: start: 20190813, end: 20190817
  8. SENNOSIDE [Concomitant]
     Active Substance: SENNOSIDES
     Indication: CONSTIPATION
     Route: 048
     Dates: start: 20190830
  9. DANVATIRSEN [Suspect]
     Active Substance: DANVATIRSEN
     Indication: NON-SMALL CELL LUNG CANCER STAGE IV
     Dosage: 200 MG
     Route: 042
     Dates: start: 20190702, end: 20190702
  10. PEMETREXED. [Suspect]
     Active Substance: PEMETREXED
     Indication: NON-SMALL CELL LUNG CANCER STAGE IV
     Dosage: 815 MG
     Route: 065
     Dates: start: 20190730, end: 20190730
  11. CARBOPLATIN. [Suspect]
     Active Substance: CARBOPLATIN
     Indication: NON-SMALL CELL LUNG CANCER STAGE IV
     Dosage: 573 MG
     Route: 065
     Dates: start: 20190430, end: 20190430
  12. DEXAMETHASONE. [Concomitant]
     Active Substance: DEXAMETHASONE
     Indication: PREMEDICATION
     Dosage: 20.0MG ONCE/SINGLE ADMINISTRATION
     Route: 042
     Dates: start: 20190430, end: 20190430
  13. ONDANSETRON [Concomitant]
     Active Substance: ONDANSETRON
     Indication: PREMEDICATION
     Dosage: 8.0MG ONCE/SINGLE ADMINISTRATION
     Route: 042
     Dates: start: 20190430, end: 20190430
  14. ONDANSETRON [Concomitant]
     Active Substance: ONDANSETRON
     Indication: PREMEDICATION
     Dosage: 8.0MG ONCE/SINGLE ADMINISTRATION
     Route: 042
     Dates: start: 20190529, end: 20190529
  15. ONDANSETRON [Concomitant]
     Active Substance: ONDANSETRON
     Indication: PREMEDICATION
     Dosage: 8.0MG ONCE/SINGLE ADMINISTRATION
     Route: 042
     Dates: start: 20190619, end: 20190619
  16. CODEINE [Concomitant]
     Active Substance: CODEINE
     Indication: COUGH
     Route: 048
     Dates: start: 20190521
  17. BUDESONIDE MDI [Concomitant]
     Indication: ASTHMA
     Route: 055
     Dates: start: 20190412
  18. SIMVASTATIN. [Concomitant]
     Active Substance: SIMVASTATIN
     Indication: DYSLIPIDAEMIA
     Route: 048
     Dates: start: 20170821
  19. LORAZEPAM. [Concomitant]
     Active Substance: LORAZEPAM
     Indication: INSOMNIA
     Dosage: 0.5MG AS REQUIRED
     Route: 048
     Dates: start: 20190625
  20. METHYLPREDNISOLONE. [Concomitant]
     Active Substance: METHYLPREDNISOLONE
     Indication: DRUG-INDUCED LIVER INJURY
     Dosage: 125.0MG ONCE/SINGLE ADMINISTRATION
     Route: 042
     Dates: start: 20190719, end: 20190721
  21. PREDNISONE. [Concomitant]
     Active Substance: PREDNISONE
     Indication: INFLAMMATION
     Route: 048
     Dates: start: 20190722, end: 20190723
  22. PREDNISONE. [Concomitant]
     Active Substance: PREDNISONE
     Indication: INFLAMMATION
     Route: 048
     Dates: start: 20190729, end: 20190802
  23. DANVATIRSEN [Suspect]
     Active Substance: DANVATIRSEN
     Indication: NON-SMALL CELL LUNG CANCER STAGE IV
     Dosage: 200 MG
     Route: 042
     Dates: start: 20190529, end: 20190529
  24. PEMETREXED. [Suspect]
     Active Substance: PEMETREXED
     Indication: NON-SMALL CELL LUNG CANCER STAGE IV
     Dosage: 500 MG
     Route: 065
     Dates: start: 20190619, end: 20190619
  25. MARIJUANA [Suspect]
     Active Substance: CANNABIS SATIVA SUBSP. INDICA TOP
     Indication: LUNG NEOPLASM MALIGNANT
     Dosage: UNKNOWN
     Route: 060
     Dates: start: 20190601, end: 20190709
  26. DEXAMETHASONE. [Concomitant]
     Active Substance: DEXAMETHASONE
     Indication: PREMEDICATION
     Dosage: 20.0MG ONCE/SINGLE ADMINISTRATION
     Route: 042
     Dates: start: 20190529, end: 20190529
  27. ONDANSETRON [Concomitant]
     Active Substance: ONDANSETRON
     Indication: PREMEDICATION
     Dosage: 8.0MG ONCE/SINGLE ADMINISTRATION
     Route: 048
     Dates: start: 20190529, end: 20190602
  28. ONDANSETRON [Concomitant]
     Active Substance: ONDANSETRON
     Indication: PREMEDICATION
     Dosage: 8.0MG ONCE/SINGLE ADMINISTRATION
     Route: 042
     Dates: start: 20190730, end: 20190730
  29. ONDANSETRON [Concomitant]
     Active Substance: ONDANSETRON
     Indication: PREMEDICATION
     Dosage: 8.0MG ONCE/SINGLE ADMINISTRATION
     Route: 048
     Dates: start: 20190730, end: 20190803
  30. ONDANSETRON [Concomitant]
     Active Substance: ONDANSETRON
     Indication: PREMEDICATION
     Dosage: 8.0MG ONCE/SINGLE ADMINISTRATION
     Route: 042
     Dates: start: 20190820, end: 20190820
  31. PREDNISONE. [Concomitant]
     Active Substance: PREDNISONE
     Indication: DRUG-INDUCED LIVER INJURY
     Route: 048
     Dates: start: 20190724, end: 20190728
  32. PREDNISONE. [Concomitant]
     Active Substance: PREDNISONE
     Indication: INFLAMMATION
     Route: 048
     Dates: start: 20190724, end: 20190728
  33. PREDNISONE. [Concomitant]
     Active Substance: PREDNISONE
     Indication: INFLAMMATION
     Route: 048
     Dates: start: 20190803, end: 20190807
  34. PREDNISONE. [Concomitant]
     Active Substance: PREDNISONE
     Indication: DRUG-INDUCED LIVER INJURY
     Route: 048
     Dates: start: 20190818, end: 20190822
  35. DEXAMETHASONE. [Concomitant]
     Active Substance: DEXAMETHASONE
     Indication: PREMEDICATION
     Dosage: 20.0MG ONCE/SINGLE ADMINISTRATION
     Route: 042
     Dates: start: 20190619, end: 20190619
  36. VITAMIN B12 [Concomitant]
     Active Substance: CYANOCOBALAMIN
     Indication: SUPPLEMENTATION THERAPY
     Dosage: 1000.0MG ONCE/SINGLE ADMINISTRATION
     Route: 030
     Dates: start: 20190423, end: 20190423
  37. PREDNISONE. [Concomitant]
     Active Substance: PREDNISONE
     Indication: DRUG-INDUCED LIVER INJURY
     Route: 048
     Dates: start: 20190803, end: 20190807
  38. DURVALUMAB. [Suspect]
     Active Substance: DURVALUMAB
     Indication: NON-SMALL CELL LUNG CANCER STAGE IV
     Dosage: 1500 MG
     Route: 042
     Dates: start: 20190529, end: 20190529
  39. DANVATIRSEN [Suspect]
     Active Substance: DANVATIRSEN
     Indication: NON-SMALL CELL LUNG CANCER STAGE IV
     Dosage: 200 MG
     Route: 042
     Dates: start: 20190507, end: 20190507
  40. DANVATIRSEN [Suspect]
     Active Substance: DANVATIRSEN
     Indication: NON-SMALL CELL LUNG CANCER STAGE IV
     Dosage: 200 MG
     Route: 042
     Dates: start: 20190605, end: 20190605
  41. DANVATIRSEN [Suspect]
     Active Substance: DANVATIRSEN
     Indication: NON-SMALL CELL LUNG CANCER STAGE IV
     Dosage: 200 MG
     Route: 042
     Dates: start: 20190619, end: 20190619
  42. CARBOPLATIN. [Suspect]
     Active Substance: CARBOPLATIN
     Indication: NON-SMALL CELL LUNG CANCER STAGE IV
     Dosage: 445 MG
     Route: 065
     Dates: start: 20190730, end: 20190730
  43. CARBOPLATIN. [Suspect]
     Active Substance: CARBOPLATIN
     Indication: NON-SMALL CELL LUNG CANCER STAGE IV
     Dosage: 445 MG
     Route: 065
     Dates: start: 20190820, end: 20190820
  44. DEXAMETHASONE. [Concomitant]
     Active Substance: DEXAMETHASONE
     Indication: PREMEDICATION
     Dosage: 4.0MG ONCE/SINGLE ADMINISTRATION
     Route: 048
     Dates: start: 20190430, end: 20190502
  45. DEXAMETHASONE. [Concomitant]
     Active Substance: DEXAMETHASONE
     Indication: PREMEDICATION
     Dosage: 20.0MG ONCE/SINGLE ADMINISTRATION
     Route: 042
     Dates: start: 20190730, end: 20190730
  46. PREDNISONE. [Concomitant]
     Active Substance: PREDNISONE
     Indication: DRUG-INDUCED LIVER INJURY
     Route: 048
     Dates: start: 20190729, end: 20190802
  47. PREDNISONE. [Concomitant]
     Active Substance: PREDNISONE
     Indication: DRUG-INDUCED LIVER INJURY
     Route: 048
     Dates: start: 20190823, end: 20190827
  48. DURVALUMAB. [Suspect]
     Active Substance: DURVALUMAB
     Indication: NON-SMALL CELL LUNG CANCER STAGE IV
     Dosage: 1500 MG
     Route: 042
     Dates: start: 20190430, end: 20190430
  49. DURVALUMAB. [Suspect]
     Active Substance: DURVALUMAB
     Indication: NON-SMALL CELL LUNG CANCER STAGE IV
     Dosage: 1500 MG
     Route: 042
     Dates: start: 20190619, end: 20190619
  50. DANVATIRSEN [Suspect]
     Active Substance: DANVATIRSEN
     Indication: NON-SMALL CELL LUNG CANCER STAGE IV
     Dosage: 200 MG
     Route: 042
     Dates: start: 20190514, end: 20190514
  51. PEMETREXED. [Suspect]
     Active Substance: PEMETREXED
     Indication: NON-SMALL CELL LUNG CANCER STAGE IV
     Dosage: 800 MG
     Route: 065
     Dates: start: 20190820, end: 20190820
  52. THEOPHYLLINE [Concomitant]
     Active Substance: THEOPHYLLINE ANHYDROUS
     Indication: CHRONIC OBSTRUCTIVE PULMONARY DISEASE
     Route: 048
     Dates: start: 20180620
  53. DEXAMETHASONE. [Concomitant]
     Active Substance: DEXAMETHASONE
     Indication: PREMEDICATION
     Dosage: 4.0MG ONCE/SINGLE ADMINISTRATION
     Route: 048
     Dates: start: 20190730, end: 20190801
  54. DEXAMETHASONE. [Concomitant]
     Active Substance: DEXAMETHASONE
     Indication: PREMEDICATION
     Dosage: 20.0MG ONCE/SINGLE ADMINISTRATION
     Route: 042
     Dates: start: 20190820, end: 20190820
  55. ONDANSETRON [Concomitant]
     Active Substance: ONDANSETRON
     Indication: PREMEDICATION
     Dosage: 8.0MG ONCE/SINGLE ADMINISTRATION
     Route: 048
     Dates: start: 20190619, end: 20190623
  56. PREDNISONE. [Concomitant]
     Active Substance: PREDNISONE
     Indication: INFLAMMATION
     Route: 048
     Dates: start: 20190818, end: 20190822
  57. URSOLIN [Concomitant]
     Indication: HEPATOTOXICITY
     Route: 048
     Dates: start: 20190724
  58. DANVATIRSEN [Suspect]
     Active Substance: DANVATIRSEN
     Indication: NON-SMALL CELL LUNG CANCER STAGE IV
     Dosage: 200 MG
     Route: 042
     Dates: start: 20190504, end: 20190504
  59. PEMETREXED. [Suspect]
     Active Substance: PEMETREXED
     Indication: NON-SMALL CELL LUNG CANCER STAGE IV
     Dosage: 815 MG
     Route: 065
     Dates: start: 20190430, end: 20190430
  60. CARBOPLATIN. [Suspect]
     Active Substance: CARBOPLATIN
     Indication: NON-SMALL CELL LUNG CANCER STAGE IV
     Dosage: 450 MG
     Route: 065
     Dates: start: 20190529, end: 20190529
  61. LOSATAN [Concomitant]
     Active Substance: LOSARTAN
     Indication: HYPERTENSION
     Route: 048
     Dates: start: 20190329
  62. ONDANSETRON [Concomitant]
     Active Substance: ONDANSETRON
     Indication: PREMEDICATION
     Dosage: 8.0MG ONCE/SINGLE ADMINISTRATION
     Route: 048
     Dates: start: 20190820
  63. VITAMIN B12 [Concomitant]
     Active Substance: CYANOCOBALAMIN
     Indication: SUPPLEMENTATION THERAPY
     Dosage: 1000.0MG ONCE/SINGLE ADMINISTRATION
     Route: 030
     Dates: start: 20190702, end: 20190702
  64. PREDNISONE. [Concomitant]
     Active Substance: PREDNISONE
     Indication: INFLAMMATION
     Route: 048
     Dates: start: 20190808, end: 20190812
  65. MORPHINE (IR) [Concomitant]
     Indication: BONE PAIN
     Route: 048
     Dates: start: 20190830
  66. DANVATIRSEN [Suspect]
     Active Substance: DANVATIRSEN
     Indication: NON-SMALL CELL LUNG CANCER STAGE IV
     Dosage: 200 MG
     Route: 042
     Dates: start: 20190430, end: 20190430
  67. DANVATIRSEN [Suspect]
     Active Substance: DANVATIRSEN
     Indication: NON-SMALL CELL LUNG CANCER STAGE IV
     Dosage: 200 MG
     Route: 042
     Dates: start: 20190502, end: 20190502
  68. CARBOPLATIN. [Suspect]
     Active Substance: CARBOPLATIN
     Indication: NON-SMALL CELL LUNG CANCER STAGE IV
     Dosage: 445 MG
     Route: 065
     Dates: start: 20190619, end: 20190619
  69. DEXAMETHASONE. [Concomitant]
     Active Substance: DEXAMETHASONE
     Indication: PREMEDICATION
     Dosage: 4.0MG ONCE/SINGLE ADMINISTRATION
     Route: 048
     Dates: start: 20190529, end: 20190531
  70. ONDANSETRON [Concomitant]
     Active Substance: ONDANSETRON
     Indication: PREMEDICATION
     Dosage: 8.0MG ONCE/SINGLE ADMINISTRATION
     Route: 048
     Dates: start: 20190430, end: 20190504
  71. FOLIC ACID. [Concomitant]
     Active Substance: FOLIC ACID
     Indication: SUPPLEMENTATION THERAPY
     Route: 048
     Dates: start: 20190423
  72. PREDNISONE. [Concomitant]
     Active Substance: PREDNISONE
     Indication: DRUG-INDUCED LIVER INJURY
     Route: 048
     Dates: start: 20190722, end: 20190723
  73. PREDNISONE. [Concomitant]
     Active Substance: PREDNISONE
     Indication: INFLAMMATION
     Route: 048
     Dates: start: 20190813, end: 20190817
  74. PREDNISONE. [Concomitant]
     Active Substance: PREDNISONE
     Indication: INFLAMMATION
     Route: 048
     Dates: start: 20190823, end: 20190827
  75. HYDROXYZINE [Concomitant]
     Active Substance: HYDROXYZINE HYDROCHLORIDE
     Indication: HYPOTENSION
     Route: 048
     Dates: start: 20190724

REACTIONS (1)
  - Drug-induced liver injury [Recovered/Resolved]

NARRATIVE: CASE EVENT DATE: 20190709
